FAERS Safety Report 9616254 (Version 2)
Quarter: 2013Q4

REPORT INFORMATION
  Report Type: Spontaneous
  Country: US (occurrence: US)
  Receive Date: 20131011
  Receipt Date: 20131011
  Transmission Date: 20140711
  Serious: Yes (Hospitalization)
  Sender: FDA-Public Use
  Company Number: US-SA-FABR-1003504

PATIENT
  Age: 39 Year
  Sex: Female

DRUGS (1)
  1. FABRAZYME [Suspect]
     Indication: FABRY^S DISEASE
     Dosage: 60 MG, Q2W
     Route: 042
     Dates: start: 201204

REACTIONS (1)
  - Pneumonia [Not Recovered/Not Resolved]
